FAERS Safety Report 4565594-4 (Version None)
Quarter: 2005Q1

REPORT INFORMATION
  Report Type: 
  Country: None (occurrence: None)
  Receive Date: 20050126
  Receipt Date: 20050106
  Transmission Date: 20050727
  Serious: Yes (Other)
  Sender: FDA-Public Use
  Company Number: USA050187637

PATIENT
  Age: 88 Year
  Sex: Female

DRUGS (9)
  1. FORTEO [Suspect]
     Indication: OSTEOPOROSIS
     Dates: start: 20030501, end: 20040101
  2. AVAPRO [Concomitant]
  3. LIPITOR [Concomitant]
  4. ATENOLOL [Concomitant]
  5. ACCUPRIL [Concomitant]
  6. TORSEMIDE [Concomitant]
  7. TEMAZEPAM [Concomitant]
  8. OSCAL (CALCIUM CARBONATO) [Concomitant]
  9. LEVOBUNOLOL [Concomitant]

REACTIONS (2)
  - CERVIX CARCINOMA [None]
  - HAEMORRHAGE [None]
